FAERS Safety Report 22198613 (Version 1)
Quarter: 2023Q2

REPORT INFORMATION
  Report Type: Spontaneous
  Country: US (occurrence: US)
  Receive Date: 20230411
  Receipt Date: 20230411
  Transmission Date: 20230721
  Serious: No
  Sender: FDA-Public Use
  Company Number: US-DSJP-DSU-2023-113695AA

PATIENT
  Age: 69 Year
  Sex: Female

DRUGS (2)
  1. ENHERTU [Suspect]
     Active Substance: FAM-TRASTUZUMAB DERUXTECAN-NXKI
     Indication: Breast cancer
     Dosage: UNK
     Route: 042
     Dates: start: 20230316
  2. ENHERTU [Suspect]
     Active Substance: FAM-TRASTUZUMAB DERUXTECAN-NXKI
     Dosage: 32ML (INTENDED TOTAL DOSE WAS 274MG)
     Route: 042
     Dates: start: 202304

REACTIONS (2)
  - Back pain [Unknown]
  - Underdose [Unknown]

NARRATIVE: CASE EVENT DATE: 20230401
